FAERS Safety Report 6746614-5 (Version None)
Quarter: 2010Q2

REPORT INFORMATION
  Report Type: 
  Country: None (occurrence: None)
  Receive Date: 20100528
  Receipt Date: 20091112
  Transmission Date: 20101027
  Serious: No
  Sender: FDA-Public Use
  Company Number: US-ASTRAZENECA-2009SE31584

PATIENT
  Age: 62 Year
  Sex: Female

DRUGS (1)
  1. PRILOSEC OTC [Suspect]
     Dosage: 1 TABLET, 2 /DAY
     Route: 048

REACTIONS (3)
  - BACK PAIN [None]
  - DRY MOUTH [None]
  - INCORRECT DOSE ADMINISTERED [None]
